FAERS Safety Report 13929282 (Version 1)
Quarter: 2017Q3

REPORT INFORMATION
  Report Type: Spontaneous
  Country: US (occurrence: US)
  Receive Date: 20170901
  Receipt Date: 20170901
  Transmission Date: 20171127
  Serious: Yes (Death, Hospitalization, Other)
  Sender: FDA-Public Use
  Company Number: US-APOTEX-2017AP017568

PATIENT
  Age: 31 Year
  Sex: Female

DRUGS (1)
  1. BUPROPION HYDROCHLORIDE. [Suspect]
     Active Substance: BUPROPION HYDROCHLORIDE
     Indication: PRODUCT USED FOR UNKNOWN INDICATION
     Dosage: 13 G, APPROXIMATELY
     Route: 048

REACTIONS (7)
  - Status epilepticus [Unknown]
  - Generalised tonic-clonic seizure [Unknown]
  - Overdose [Unknown]
  - Electrocardiogram QRS complex prolonged [Unknown]
  - Circulatory collapse [Fatal]
  - Ventricular tachycardia [Unknown]
  - Aphasia [Unknown]
